FAERS Safety Report 14146876 (Version 2)
Quarter: 2018Q1

REPORT INFORMATION
  Report Type: Spontaneous
  Country: US (occurrence: US)
  Receive Date: 20171031
  Receipt Date: 20180102
  Transmission Date: 20180508
  Serious: No
  Sender: FDA-Public Use
  Company Number: US-ASTRAZENECA-2017SF09549

PATIENT
  Sex: Female
  Weight: 78.9 kg

DRUGS (2)
  1. LISINOPRIL. [Suspect]
     Active Substance: LISINOPRIL
     Indication: BLOOD CHOLESTEROL ABNORMAL
     Route: 048
  2. BYDUREON [Suspect]
     Active Substance: EXENATIDE
     Indication: TYPE 2 DIABETES MELLITUS
     Route: 058
     Dates: start: 201708

REACTIONS (5)
  - Injection site pain [Not Recovered/Not Resolved]
  - Underdose [Unknown]
  - Injection site haemorrhage [Recovered/Resolved]
  - Injection site nodule [Not Recovered/Not Resolved]
  - Product quality issue [Unknown]
